FAERS Safety Report 9708615 (Version 1)
Quarter: 2013Q4

REPORT INFORMATION
  Report Type: Spontaneous
  Country: DE (occurrence: DE)
  Receive Date: 20131125
  Receipt Date: 20131125
  Transmission Date: 20140711
  Serious: Yes (Hospitalization)
  Sender: FDA-Public Use
  Company Number: DE-TEVA-445542GER

PATIENT
  Age: 50 Year
  Sex: Female

DRUGS (3)
  1. VENLAFAXIN [Suspect]
     Indication: DEPRESSION
     Dosage: 225 MILLIGRAM DAILY;
     Route: 048
     Dates: start: 2010, end: 20130127
  2. VENLAFAXIN [Suspect]
     Route: 048
     Dates: start: 20130128, end: 20130403
  3. VENLAFAXIN [Suspect]
     Dosage: 300 - 75 MG UNTIL FURTHER
     Route: 048
     Dates: start: 20130403

REACTIONS (1)
  - Bipolar I disorder [Recovered/Resolved]
